FAERS Safety Report 7916562-3 (Version None)
Quarter: 2011Q4

REPORT INFORMATION
  Report Type: 
  Country: None (occurrence: None)
  Receive Date: 20111114
  Receipt Date: 20110825
  Transmission Date: 20120403
  Serious: Yes (Other)
  Sender: FDA-Public Use
  Company Number: AUR-APL-2011-05774

PATIENT
  Age: 15 Year
  Sex: Male

DRUGS (29)
  1. SOMA [Suspect]
     Indication: PRODUCT USED FOR UNKNOWN INDICATION
  2. TEGRETOL [Suspect]
     Indication: PRODUCT USED FOR UNKNOWN INDICATION
  3. CARBAMAZEPINE [Suspect]
     Indication: PRODUCT USED FOR UNKNOWN INDICATION
  4. IMITREX [Suspect]
     Indication: PRODUCT USED FOR UNKNOWN INDICATION
  5. RISPERDAL [Suspect]
     Indication: PRODUCT USED FOR UNKNOWN INDICATION
  6. SEROQUEL [Suspect]
     Indication: PRODUCT USED FOR UNKNOWN INDICATION
  7. PAMELOR [Suspect]
     Indication: PRODUCT USED FOR UNKNOWN INDICATION
  8. MIRTAZAPINE [Suspect]
     Indication: PRODUCT USED FOR UNKNOWN INDICATION
  9. CELEBREX [Suspect]
     Indication: PRODUCT USED FOR UNKNOWN INDICATION
  10. GEODON [Suspect]
     Indication: PRODUCT USED FOR UNKNOWN INDICATION
  11. LAMICTAL [Suspect]
     Indication: PRODUCT USED FOR UNKNOWN INDICATION
  12. VALIUM [Suspect]
     Indication: PAIN
  13. ZOMIG [Suspect]
     Indication: PRODUCT USED FOR UNKNOWN INDICATION
  14. TRAZODONE HCL [Suspect]
     Indication: DEPRESSION
  15. LITHIUM CARBONATE [Suspect]
     Indication: PRODUCT USED FOR UNKNOWN INDICATION
  16. LEXAPRO [Suspect]
     Indication: PRODUCT USED FOR UNKNOWN INDICATION
  17. METAXALONE [Suspect]
     Indication: PRODUCT USED FOR UNKNOWN INDICATION
  18. WELLBUTRIN [Suspect]
     Indication: PRODUCT USED FOR UNKNOWN INDICATION
  19. CYMBALTA [Suspect]
     Indication: DEPRESSION
  20. KLONOPIN [Suspect]
     Indication: PRODUCT USED FOR UNKNOWN INDICATION
  21. ZOLOFT [Suspect]
     Indication: PRODUCT USED FOR UNKNOWN INDICATION
  22. EFFEXOR XR [Suspect]
     Indication: PRODUCT USED FOR UNKNOWN INDICATION
  23. BUSPAR [Suspect]
     Indication: PRODUCT USED FOR UNKNOWN INDICATION
  24. PAXIL [Suspect]
     Indication: PRODUCT USED FOR UNKNOWN INDICATION
  25. EFFEXOR [Suspect]
     Indication: PRODUCT USED FOR UNKNOWN INDICATION
     Dosage: (3.75 MG)
  26. DEPAKOTE [Suspect]
     Indication: HEADACHE
  27. ZYPREXA [Suspect]
     Indication: PRODUCT USED FOR UNKNOWN INDICATION
  28. ELAVIL [Suspect]
     Indication: PRODUCT USED FOR UNKNOWN INDICATION
  29. RITALIN [Suspect]
     Indication: HEADACHE

REACTIONS (30)
  - ANGER [None]
  - HEADACHE [None]
  - WEIGHT INCREASED [None]
  - PAIN [None]
  - ERECTION INCREASED [None]
  - HYPERACUSIS [None]
  - AGITATION [None]
  - RASH [None]
  - ADVERSE DRUG REACTION [None]
  - AGGRESSION [None]
  - RECTAL HAEMORRHAGE [None]
  - ANXIETY [None]
  - DRUG INEFFECTIVE [None]
  - FATIGUE [None]
  - DISTURBANCE IN ATTENTION [None]
  - INFLUENZA [None]
  - RAPID EYE MOVEMENTS SLEEP ABNORMAL [None]
  - AFFECTIVE DISORDER [None]
  - FEELING ABNORMAL [None]
  - INSOMNIA [None]
  - DEAFNESS [None]
  - MUSCLE SPASMS [None]
  - MEMORY IMPAIRMENT [None]
  - CONSTIPATION [None]
  - CONDITION AGGRAVATED [None]
  - SOMNOLENCE [None]
  - ABNORMAL BEHAVIOUR [None]
  - BREAST ENLARGEMENT [None]
  - SUICIDAL IDEATION [None]
  - GASTRIC ULCER [None]
